FAERS Safety Report 24451529 (Version 1)
Quarter: 2024Q4

REPORT INFORMATION
  Report Type: Spontaneous
  Country: ES (occurrence: ES)
  Receive Date: 20241017
  Receipt Date: 20241017
  Transmission Date: 20250115
  Serious: Yes (Other)
  Sender: MERCK KGAA
  Company Number: ES-Merck Healthcare KGaA-2024053706

PATIENT
  Sex: Female

DRUGS (1)
  1. EUTHYROX [Suspect]
     Active Substance: LEVOTHYROXINE SODIUM
     Indication: Product used for unknown indication

REACTIONS (2)
  - Choking [Not Recovered/Not Resolved]
  - Alopecia [Unknown]
